FAERS Safety Report 5988181-X (Version None)
Quarter: 2008Q4

REPORT INFORMATION
  Report Type: 
  Country: None (occurrence: None)
  Receive Date: 20081204
  Receipt Date: 20081117
  Transmission Date: 20090506
  Serious: Yes (Death)
  Sender: FDA-Public Use
  Company Number: 8039813

PATIENT
  Age: 43 Year
  Sex: Female

DRUGS (9)
  1. PREDNISOLONE [Suspect]
     Indication: ENGRAFTMENT SYNDROME
     Dosage: 1 MG/KG /D
  2. IDARUBICIN HCL [Concomitant]
  3. CYTOSIN ARABINOSIDE [Concomitant]
  4. CYCLOPHOSPHAMIDE [Concomitant]
  5. SHORT-TERM METHOTREXATE [Concomitant]
  6. FLUDARABINE PHOSPHATE [Concomitant]
  7. MELPHALAN [Concomitant]
  8. CYCLOSPORINE [Concomitant]
  9. MYCOPHENOLATE MOFETIL [Concomitant]

REACTIONS (5)
  - BLOOD CULTURE POSITIVE [None]
  - DISSEMINATED TUBERCULOSIS [None]
  - HYPOXIA [None]
  - PLATELET COUNT DECREASED [None]
  - RESPIRATORY DISORDER [None]
